FAERS Safety Report 18673129 (Version 1)
Quarter: 2020Q4

REPORT INFORMATION
  Report Type: Spontaneous
  Country: CN (occurrence: CN)
  Receive Date: 20201229
  Receipt Date: 20201229
  Transmission Date: 20210114
  Serious: Yes (Hospitalization)
  Sender: FDA-Public Use
  Company Number: CN-JNJFOC-20201250352

PATIENT
  Age: 90 Year
  Sex: Male
  Weight: 60 kg

DRUGS (4)
  1. CLOPIDOGREL HYDROCHLORIDE [Suspect]
     Active Substance: CLOPIDOGREL HYDROCHLORIDE
     Indication: PRODUCT USED FOR UNKNOWN INDICATION
     Route: 065
  2. XARELTO [Suspect]
     Active Substance: RIVAROXABAN
     Indication: NEPHROLITHIASIS
     Dosage: 10 MG, QD
     Route: 048
     Dates: start: 20201103, end: 20201104
  3. BAYASPIRIN [Suspect]
     Active Substance: ASPIRIN
     Indication: PROPHYLAXIS
     Route: 065
  4. XARELTO [Suspect]
     Active Substance: RIVAROXABAN
     Indication: URETEROLITHIASIS

REACTIONS (6)
  - Nephrolithiasis [Unknown]
  - Drug intolerance [Unknown]
  - Ureterolithiasis [Unknown]
  - Haematuria [Recovered/Resolved]
  - Product use in unapproved indication [Unknown]
  - Off label use [Unknown]

NARRATIVE: CASE EVENT DATE: 20201103
